FAERS Safety Report 7379894-6 (Version None)
Quarter: 2011Q1

REPORT INFORMATION
  Report Type: 
  Country: None (occurrence: None)
  Receive Date: 20110318
  Receipt Date: 20110316
  Transmission Date: 20110831
  Serious: Yes (Death)
  Sender: FDA-Public Use
  Company Number: 1000018622

PATIENT
  Age: 86 Year
  Sex: Female
  Weight: 49.5 kg

DRUGS (2)
  1. DONEPEZIL (DONEPEZIL) (DONEPEZIL) [Concomitant]
  2. MEMANTINE [Suspect]
     Indication: DEMENTIA ALZHEIMER'S TYPE
     Dosage: SEE IMAGE
     Route: 048
     Dates: start: 20100315

REACTIONS (2)
  - CIRCULATORY COLLAPSE [None]
  - CARDIAC FAILURE [None]
